FAERS Safety Report 18043232 (Version 5)
Quarter: 2020Q3

REPORT INFORMATION
  Report Type: Report from Study
  Country: CA (occurrence: CA)
  Receive Date: 20200720
  Receipt Date: 20200820
  Transmission Date: 20201103
  Serious: Yes (Other)
  Sender: FDA-Public Use
  Company Number: CA-GLAXOSMITHKLINE-CA2020AMR132215

PATIENT
  Sex: Male

DRUGS (8)
  1. NUCALA [Suspect]
     Active Substance: MEPOLIZUMAB
     Indication: ASTHMA
     Dosage: 100 MG, Z, MONTHLY
     Route: 042
     Dates: start: 20200729
  2. SYMBICORT [Suspect]
     Active Substance: BUDESONIDE\FORMOTEROL FUMARATE DIHYDRATE
     Dosage: 3 PUFF(S), BID
  3. SYMBICORT [Suspect]
     Active Substance: BUDESONIDE\FORMOTEROL FUMARATE DIHYDRATE
     Indication: ASTHMA
     Dosage: 2 PUFF(S), BID TO QID AS NEEDED, 200/6UG
  4. SPIRIVA RESPIMAT [Suspect]
     Active Substance: TIOTROPIUM BROMIDE
     Indication: ASTHMA
     Dosage: 2 PUFF(S), QD, 2.5UG
  5. RANITIDINE. [Suspect]
     Active Substance: RANITIDINE
     Indication: PRODUCT USED FOR UNKNOWN INDICATION
     Dosage: 150 MG, BID
     Route: 048
  6. ATROVENT [Suspect]
     Active Substance: IPRATROPIUM BROMIDE
     Indication: PRODUCT USED FOR UNKNOWN INDICATION
     Dosage: UNK, 1?2 PUFFS 4?6 HR WHEN REQUIRED
  7. SALBUTAMOL SULPHATE [Suspect]
     Active Substance: ALBUTEROL SULFATE
     Indication: ASTHMA
     Dosage: 100 UG, 1?2 PUFF PRN
  8. PREDNISONE. [Suspect]
     Active Substance: PREDNISONE
     Indication: ASTHMA
     Dosage: UNK

REACTIONS (27)
  - Chest discomfort [Unknown]
  - Productive cough [Unknown]
  - Rash macular [Recovered/Resolved]
  - Dyspnoea exertional [Unknown]
  - Dyspnoea [Unknown]
  - Lactose intolerance [Unknown]
  - Abdominal pain [Unknown]
  - Secretion discharge [Unknown]
  - Basophil count increased [Unknown]
  - Gastrooesophageal reflux disease [Unknown]
  - Lung diffusion test abnormal [Unknown]
  - Costochondritis [Unknown]
  - Candida infection [Unknown]
  - Respiratory gas exchange disorder [Unknown]
  - Loss of personal independence in daily activities [Unknown]
  - Asthma [Unknown]
  - Total lung capacity increased [Unknown]
  - Sputum discoloured [Unknown]
  - Insomnia [Unknown]
  - Abdominal distension [Recovered/Resolved]
  - Therapeutic product effect incomplete [Unknown]
  - Wheezing [Unknown]
  - Night sweats [Not Recovered/Not Resolved]
  - Sleep disorder due to a general medical condition [Unknown]
  - Obstructive airways disorder [Unknown]
  - Weight decreased [Unknown]
  - Oral candidiasis [Unknown]
